FAERS Safety Report 7649802-9 (Version None)
Quarter: 2011Q3

REPORT INFORMATION
  Report Type: 
  Country: None (occurrence: None)
  Receive Date: 20110802
  Receipt Date: 20110721
  Transmission Date: 20111222
  Serious: Yes (Other)
  Sender: FDA-Public Use
  Company Number: JP-CELGENEUS-087-21880-10112966

PATIENT
  Sex: Female
  Weight: 49.36 kg

DRUGS (16)
  1. REVLIMID [Suspect]
     Dosage: 10 MILLIGRAM
     Route: 048
     Dates: start: 20110106, end: 20110112
  2. LASIX [Concomitant]
     Indication: HYPERTENSION
     Dosage: 40 MILLIGRAM
     Route: 048
     Dates: start: 20100930
  3. GLYCYRON [Concomitant]
     Dosage: 3 TABLET
     Route: 048
     Dates: start: 20100930
  4. BASEN OD [Concomitant]
     Indication: DIABETES MELLITUS
     Dosage: .6 MILLIGRAM
     Route: 048
     Dates: start: 20100930
  5. OXYCONTIN [Concomitant]
     Route: 048
     Dates: start: 20110106, end: 20110202
  6. REVLIMID [Suspect]
     Indication: MULTIPLE MYELOMA
     Dosage: 10 MILLIGRAM
     Route: 048
     Dates: start: 20100930, end: 20101003
  7. REVLIMID [Suspect]
     Dosage: 10 MILLIGRAM
     Route: 048
     Dates: start: 20101028, end: 20101118
  8. REVLIMID [Suspect]
     Dosage: 10 MILLIGRAM
     Route: 048
     Dates: start: 20110114, end: 20110117
  9. REVLIMID [Suspect]
     Dosage: 10 MILLIGRAM
     Route: 048
     Dates: start: 20101006, end: 20101020
  10. NEO-MERCAZOLE TAB [Concomitant]
     Dosage: 5 MILLIGRAM
     Route: 048
     Dates: start: 20100930
  11. REVLIMID [Suspect]
     Dosage: 10 MILLIGRAM
     Route: 048
     Dates: start: 20110203, end: 20110216
  12. PENTAZOCINE LACTATE [Concomitant]
     Dosage: 75 MILLIGRAM
     Route: 048
     Dates: start: 20101125
  13. REVLIMID [Suspect]
     Dosage: 10 MILLIGRAM
     Route: 048
     Dates: start: 20101209, end: 20101229
  14. REVLIMID [Suspect]
     Dosage: 10 MILLIGRAM
     Route: 048
     Dates: start: 20110119, end: 20110119
  15. REVLIMID [Suspect]
     Dosage: 10 MILLIGRAM
     Route: 048
     Dates: start: 20110324, end: 20110403
  16. DIGOXIN [Concomitant]
     Indication: PROPHYLAXIS
     Dosage: .25 MILLIGRAM
     Route: 048
     Dates: start: 20100930

REACTIONS (4)
  - ANAEMIA [None]
  - PYREXIA [None]
  - WHITE BLOOD CELL COUNT DECREASED [None]
  - RENAL DISORDER [None]
